FAERS Safety Report 4374290-8 (Version None)
Quarter: 2004Q2

REPORT INFORMATION
  Report Type: 
  Country: None (occurrence: None)
  Receive Date: 20040608
  Receipt Date: 20040608
  Transmission Date: 20050107
  Serious: Yes (Other)
  Sender: FDA-Public Use
  Company Number: None

PATIENT
  Age: 78 Year
  Sex: Male
  Weight: 81.6475 kg

DRUGS (1)
  1. PRAVACHOL [Suspect]
     Indication: CAROTID ARTERY DISEASE
     Dosage: 40 MG  DAY ORAL
     Route: 048

REACTIONS (1)
  - PAIN IN EXTREMITY [None]
